FAERS Safety Report 9721807 (Version 3)
Quarter: 2014Q1

REPORT INFORMATION
  Report Type: Spontaneous
  Country: US (occurrence: US)
  Receive Date: 20131201
  Receipt Date: 20140228
  Transmission Date: 20141002
  Serious: No
  Sender: FDA-Public Use
  Company Number: US-ABBVIE-13P-163-1159306-00

PATIENT
  Age: 49 Year
  Sex: Male
  Weight: 153.45 kg

DRUGS (7)
  1. ANDROGEL [Suspect]
     Indication: BLOOD TESTOSTERONE DECREASED
     Route: 061
     Dates: start: 201304
  2. CYMBALTA [Concomitant]
     Indication: DEPRESSION
  3. TRAZADONE [Concomitant]
     Indication: DEPRESSION
  4. XANAX [Concomitant]
     Indication: PRODUCT USED FOR UNKNOWN INDICATION
  5. CLONAZEPAM [Concomitant]
     Indication: DEPRESSION
  6. OXYCONTIN [Concomitant]
     Indication: PAIN
     Dosage: WEANING OFF PAIN MEDS, PRN
  7. OXYCODONE [Concomitant]
     Indication: PAIN
     Dosage: WEANING OFF OF PAIN MEDICATIONS, PRN
     Route: 048

REACTIONS (3)
  - Weight decreased [Not Recovered/Not Resolved]
  - Blood creatinine increased [Not Recovered/Not Resolved]
  - Erectile dysfunction [Not Recovered/Not Resolved]
